FAERS Safety Report 23748379 (Version 1)
Quarter: 2024Q2

REPORT INFORMATION
  Report Type: Spontaneous
  Country: US (occurrence: None)
  Receive Date: 20240416
  Receipt Date: 20240416
  Transmission Date: 20240716
  Serious: Yes (Hospitalization)
  Sender: FDA-Public Use
  Company Number: None

PATIENT
  Age: 63 Year
  Sex: Male

DRUGS (1)
  1. TAFINLAR [Suspect]
     Active Substance: DABRAFENIB MESYLATE
     Indication: Malignant melanoma
     Dosage: FREQUENCY : TWICE A DAY;?

REACTIONS (8)
  - Immune system disorder [None]
  - Pyrexia [None]
  - Chills [None]
  - Diarrhoea [None]
  - Confusional state [None]
  - Tremor [None]
  - Infection [None]
  - Cough [None]
